FAERS Safety Report 7830791-9 (Version None)
Quarter: 2011Q4

REPORT INFORMATION
  Report Type: 
  Country: None (occurrence: None)
  Receive Date: 20111021
  Receipt Date: 20111017
  Transmission Date: 20120403
  Serious: Yes (Hospitalization)
  Sender: FDA-Public Use
  Company Number: US-GLAXOSMITHKLINE-A0949337A

PATIENT
  Age: 77 Year
  Sex: Female

DRUGS (3)
  1. ADVAIR DISKUS 100/50 [Suspect]
     Indication: CHRONIC OBSTRUCTIVE PULMONARY DISEASE
     Dosage: 1PUFF TWICE PER DAY
     Route: 055
     Dates: start: 20040101
  2. SPIRIVA [Concomitant]
  3. PROAIR HFA [Concomitant]

REACTIONS (8)
  - EAR INFECTION [None]
  - EAR DISCOMFORT [None]
  - SINUSITIS [None]
  - MIDDLE EAR EFFUSION [None]
  - HYPOACUSIS [None]
  - EAR PAIN [None]
  - SINUS HEADACHE [None]
  - HYPERTENSION [None]
